FAERS Safety Report 16884701 (Version 1)
Quarter: 2019Q4

REPORT INFORMATION
  Report Type: Spontaneous
  Country: US (occurrence: US)
  Receive Date: 20191004
  Receipt Date: 20191004
  Transmission Date: 20200122
  Serious: No
  Sender: FDA-Public Use
  Company Number: US-ASTRAZENECA-2019SF36200

PATIENT
  Age: 28805 Day
  Sex: Female

DRUGS (1)
  1. DALIRESP [Suspect]
     Active Substance: ROFLUMILAST
     Route: 048
     Dates: start: 2019

REACTIONS (4)
  - Discomfort [Unknown]
  - Abdominal discomfort [Unknown]
  - Malaise [Unknown]
  - Diarrhoea [Unknown]

NARRATIVE: CASE EVENT DATE: 20190908
